FAERS Safety Report 10278160 (Version 1)
Quarter: 2014Q3

REPORT INFORMATION
  Report Type: Spontaneous
  Country: US (occurrence: US)
  Receive Date: 20140704
  Receipt Date: 20140704
  Transmission Date: 20150326
  Serious: Yes (Other)
  Sender: FDA-Public Use
  Company Number: PHEH2014US013081

PATIENT
  Sex: Male

DRUGS (1)
  1. TEKTURNA [Suspect]
     Active Substance: ALISKIREN HEMIFUMARATE
     Dosage: 300 MG, QD
     Dates: start: 201103, end: 201204

REACTIONS (10)
  - Renal failure chronic [Unknown]
  - Pain [Unknown]
  - Terminal state [Unknown]
  - Hypotension [Unknown]
  - Renal impairment [Unknown]
  - Anxiety [Unknown]
  - Anhedonia [Unknown]
  - Cerebrovascular accident [Unknown]
  - Blood potassium increased [Unknown]
  - Injury [Unknown]
